FAERS Safety Report 5078654-9 (Version None)
Quarter: 2006Q3

REPORT INFORMATION
  Report Type: 
  Country: None (occurrence: None)
  Receive Date: 20060810
  Receipt Date: 20060810
  Transmission Date: 20061208
  Serious: Yes (Life-Threatening, Other)
  Sender: FDA-Public Use
  Company Number: None

PATIENT
  Age: 34 Year
  Sex: Female
  Weight: 77.1115 kg

DRUGS (2)
  1. ULTRAM [Suspect]
     Indication: INTERVERTEBRAL DISC OPERATION
     Dosage: ONE TAB DAILY PO
     Route: 048
     Dates: start: 20060628, end: 20060726
  2. ULTRAM [Suspect]
     Indication: PROCEDURAL PAIN
     Dosage: ONE TAB DAILY PO
     Route: 048
     Dates: start: 20060628, end: 20060726

REACTIONS (6)
  - DRUG WITHDRAWAL SYNDROME [None]
  - FEELING ABNORMAL [None]
  - FEELING HOT [None]
  - GRAND MAL CONVULSION [None]
  - INAPPROPRIATE SCHEDULE OF DRUG ADMINISTRATION [None]
  - INCORRECT DOSE ADMINISTERED [None]
